FAERS Safety Report 7624944-2 (Version None)
Quarter: 2011Q3

REPORT INFORMATION
  Report Type: 
  Country: None (occurrence: None)
  Receive Date: 20110720
  Receipt Date: 20110711
  Transmission Date: 20111222
  Serious: Yes (Hospitalization, Other)
  Sender: FDA-Public Use
  Company Number: US-ASTRAZENECA-2011SE19624

PATIENT
  Age: 62 Year
  Sex: Male
  Weight: 99.8 kg

DRUGS (1)
  1. NEXIUM [Suspect]
     Route: 048

REACTIONS (6)
  - LIMB INJURY [None]
  - CEREBROVASCULAR ACCIDENT [None]
  - STENT PLACEMENT [None]
  - MYOCARDIAL INFARCTION [None]
  - CATHETERISATION CARDIAC [None]
  - TYMPANIC MEMBRANE PERFORATION [None]
